FAERS Safety Report 24624437 (Version 1)
Quarter: 2024Q4

REPORT INFORMATION
  Report Type: Spontaneous
  Country: US (occurrence: US)
  Receive Date: 20241115
  Receipt Date: 20241115
  Transmission Date: 20250115
  Serious: Yes (Life-Threatening, Hospitalization, Other)
  Sender: PFIZER
  Company Number: US-PFIZER INC-PV202400146662

PATIENT
  Age: 9 Year
  Sex: Male

DRUGS (41)
  1. KETAMINE HYDROCHLORIDE [Suspect]
     Active Substance: KETAMINE HYDROCHLORIDE
     Indication: Suicidal ideation
     Dosage: UNK
     Dates: start: 202207
  2. KETAMINE HYDROCHLORIDE [Suspect]
     Active Substance: KETAMINE HYDROCHLORIDE
     Indication: Obsessive-compulsive disorder
  3. KETAMINE HYDROCHLORIDE [Suspect]
     Active Substance: KETAMINE HYDROCHLORIDE
     Indication: Paediatric acute-onset neuropsychiatric syndrome
  4. OLANZAPINE [Suspect]
     Active Substance: OLANZAPINE
     Indication: Suicidal ideation
     Dosage: UNK
     Dates: start: 202206
  5. OLANZAPINE [Suspect]
     Active Substance: OLANZAPINE
     Indication: Obsessive-compulsive disorder
     Dosage: TITRATED TO 7.5
     Dates: start: 202206
  6. OLANZAPINE [Suspect]
     Active Substance: OLANZAPINE
     Indication: Paediatric acute-onset neuropsychiatric syndrome
     Dosage: 5 MG
     Dates: start: 202210
  7. CLOMIPRAMINE [Suspect]
     Active Substance: CLOMIPRAMINE
     Indication: Obsessive-compulsive disorder
     Dosage: 100 MG, DAILY
     Dates: start: 202206, end: 202211
  8. CLOMIPRAMINE [Suspect]
     Active Substance: CLOMIPRAMINE
     Indication: Suicidal ideation
  9. CLOMIPRAMINE [Suspect]
     Active Substance: CLOMIPRAMINE
     Indication: Paediatric acute-onset neuropsychiatric syndrome
  10. ARIPIPRAZOLE [Suspect]
     Active Substance: ARIPIPRAZOLE
     Indication: Obsessive-compulsive disorder
     Dosage: 7 MG, DAILY
     Dates: start: 202208, end: 202209
  11. ARIPIPRAZOLE [Suspect]
     Active Substance: ARIPIPRAZOLE
     Indication: Suicidal ideation
  12. ARIPIPRAZOLE [Suspect]
     Active Substance: ARIPIPRAZOLE
     Indication: Paediatric acute-onset neuropsychiatric syndrome
  13. LAMOTRIGINE [Suspect]
     Active Substance: LAMOTRIGINE
     Indication: Obsessive-compulsive disorder
     Dosage: 150 MG, DAILY
     Dates: start: 202208
  14. LAMOTRIGINE [Suspect]
     Active Substance: LAMOTRIGINE
     Indication: Suicidal ideation
     Dosage: 25 MG, 2X/DAY
     Dates: start: 2023, end: 202311
  15. LAMOTRIGINE [Suspect]
     Active Substance: LAMOTRIGINE
     Indication: Paediatric acute-onset neuropsychiatric syndrome
  16. LURASIDONE [Suspect]
     Active Substance: LURASIDONE
     Indication: Obsessive-compulsive disorder
     Dosage: UNK
     Dates: start: 202209, end: 202209
  17. LURASIDONE [Suspect]
     Active Substance: LURASIDONE
     Indication: Suicidal ideation
  18. LURASIDONE [Suspect]
     Active Substance: LURASIDONE
     Indication: Paediatric acute-onset neuropsychiatric syndrome
  19. AZITHROMYCIN [Concomitant]
     Active Substance: AZITHROMYCIN
     Indication: Obsessive-compulsive disorder
     Dosage: 250 MG, THREE TIMES WEEKLY
     Dates: start: 202208
  20. AZITHROMYCIN [Concomitant]
     Active Substance: AZITHROMYCIN
     Indication: Suicidal ideation
  21. AZITHROMYCIN [Concomitant]
     Active Substance: AZITHROMYCIN
     Indication: Paediatric acute-onset neuropsychiatric syndrome
  22. AZITHROMYCIN [Concomitant]
     Active Substance: AZITHROMYCIN
     Indication: Infection prophylaxis
  23. LORAZEPAM [Concomitant]
     Active Substance: LORAZEPAM
     Indication: Obsessive-compulsive disorder
     Dosage: 2 MG
     Dates: start: 202210
  24. LORAZEPAM [Concomitant]
     Active Substance: LORAZEPAM
     Indication: Suicidal ideation
  25. LORAZEPAM [Concomitant]
     Active Substance: LORAZEPAM
     Indication: Paediatric acute-onset neuropsychiatric syndrome
  26. HUMAN IMMUNOGLOBULIN G [Concomitant]
     Active Substance: HUMAN IMMUNOGLOBULIN G
     Indication: Suicidal ideation
     Dosage: 1 G/KG
     Route: 042
     Dates: start: 202207
  27. HUMAN IMMUNOGLOBULIN G [Concomitant]
     Active Substance: HUMAN IMMUNOGLOBULIN G
     Indication: Obsessive-compulsive disorder
     Dosage: UNK
     Route: 042
     Dates: start: 202209
  28. HUMAN IMMUNOGLOBULIN G [Concomitant]
     Active Substance: HUMAN IMMUNOGLOBULIN G
     Indication: Paediatric acute-onset neuropsychiatric syndrome
     Dosage: UNK
     Route: 042
     Dates: start: 202210
  29. HUMAN IMMUNOGLOBULIN G [Concomitant]
     Active Substance: HUMAN IMMUNOGLOBULIN G
     Dosage: UNK
     Route: 042
     Dates: start: 202311
  30. HUMAN IMMUNOGLOBULIN G [Concomitant]
     Active Substance: HUMAN IMMUNOGLOBULIN G
     Dosage: UNK
     Route: 042
     Dates: start: 202402
  31. IBUPROFEN [Concomitant]
     Active Substance: IBUPROFEN
     Indication: Obsessive-compulsive disorder
     Dosage: 300 MG, 3X/DAY
     Dates: start: 202208
  32. IBUPROFEN [Concomitant]
     Active Substance: IBUPROFEN
     Indication: Suicidal ideation
  33. IBUPROFEN [Concomitant]
     Active Substance: IBUPROFEN
     Indication: Paediatric acute-onset neuropsychiatric syndrome
  34. CLINDAMYCIN [Concomitant]
     Active Substance: CLINDAMYCIN
     Indication: Obsessive-compulsive disorder
     Dosage: UNK
     Dates: start: 202209
  35. CLINDAMYCIN [Concomitant]
     Active Substance: CLINDAMYCIN
     Indication: Suicidal ideation
  36. CLINDAMYCIN [Concomitant]
     Active Substance: CLINDAMYCIN
     Indication: Paediatric acute-onset neuropsychiatric syndrome
  37. FLUVOXAMINE [Concomitant]
     Active Substance: FLUVOXAMINE
     Indication: Suicidal ideation
     Dosage: 100 MG, DAILY
     Dates: start: 202206
  38. FLUVOXAMINE [Concomitant]
     Active Substance: FLUVOXAMINE
     Indication: Obsessive-compulsive disorder
  39. FLUVOXAMINE [Concomitant]
     Active Substance: FLUVOXAMINE
     Indication: Paediatric acute-onset neuropsychiatric syndrome
  40. PENICILLIN [Concomitant]
     Active Substance: PENICILLIN
     Indication: Prophylaxis
     Dosage: UNK
     Dates: start: 202206
  41. PENICILLIN [Concomitant]
     Active Substance: PENICILLIN
     Dosage: UNK
     Dates: start: 202209

REACTIONS (2)
  - Drug ineffective [Recovering/Resolving]
  - Off label use [Unknown]
